FAERS Safety Report 10624813 (Version 1)
Quarter: 2014Q4

REPORT INFORMATION
  Report Type: Spontaneous
  Country: US (occurrence: US)
  Receive Date: 20141204
  Receipt Date: 20141204
  Transmission Date: 20150529
  Serious: Yes (Hospitalization, Other)
  Sender: FDA-Public Use
  Company Number: US-ROCHE-1496986

PATIENT
  Age: 59 Year
  Sex: Female

DRUGS (8)
  1. KLONOPIN [Suspect]
     Active Substance: CLONAZEPAM
     Indication: BIPOLAR DISORDER
     Route: 065
     Dates: start: 1999
  2. CLONAZEPAM. [Suspect]
     Active Substance: CLONAZEPAM
     Indication: BIPOLAR DISORDER
     Route: 065
  3. WELLBUTRIN [Concomitant]
     Active Substance: BUPROPION HYDROCHLORIDE
     Indication: DEPRESSION
     Route: 065
  4. LISINOPRIL. [Concomitant]
     Active Substance: LISINOPRIL
  5. LEXAPRO [Concomitant]
     Active Substance: ESCITALOPRAM OXALATE
     Indication: DEPRESSION
     Route: 065
  6. UROCIT-K [Concomitant]
     Active Substance: POTASSIUM CITRATE
     Indication: RENAL LITHIASIS PROPHYLAXIS
  7. NORVASC [Concomitant]
     Active Substance: AMLODIPINE BESYLATE
  8. LEVOTHYROXINE [Concomitant]
     Active Substance: LEVOTHYROXINE

REACTIONS (5)
  - Hypoxia [Unknown]
  - Dementia [Unknown]
  - Trigeminal neuralgia [Recovered/Resolved]
  - Tendonitis [Recovered/Resolved]
  - Post procedural infection [Unknown]

NARRATIVE: CASE EVENT DATE: 201206
